FAERS Safety Report 15157923 (Version 1)
Quarter: 2018Q3

REPORT INFORMATION
  Report Type: Spontaneous
  Country: CA (occurrence: CA)
  Receive Date: 20180718
  Receipt Date: 20180718
  Transmission Date: 20181010
  Serious: Yes (Death, Other)
  Sender: FDA-Public Use
  Company Number: CA-009507513-1604CAN003017

PATIENT
  Age: 68 Year
  Sex: Female
  Weight: 98.7 kg

DRUGS (4)
  1. KEYTRUDA [Suspect]
     Active Substance: PEMBROLIZUMAB
     Dosage: 198 MG, Q3W
     Route: 042
  2. KEYTRUDA [Suspect]
     Active Substance: PEMBROLIZUMAB
     Dosage: UNK, Q3W
     Route: 042
  3. KEYTRUDA [Suspect]
     Active Substance: PEMBROLIZUMAB
     Indication: MALIGNANT MELANOMA
     Dosage: 182 MG, Q3W
     Route: 042
     Dates: start: 20151009
  4. KEYTRUDA [Suspect]
     Active Substance: PEMBROLIZUMAB
     Dosage: 197 MG, Q3W
     Route: 042

REACTIONS (21)
  - Dysphonia [Unknown]
  - Burning sensation [Unknown]
  - Lacrimation increased [Unknown]
  - Visual impairment [Unknown]
  - Weight decreased [Unknown]
  - Pain in extremity [Unknown]
  - Fatigue [Unknown]
  - Infection [Not Recovered/Not Resolved]
  - Pain [Unknown]
  - Rash [Unknown]
  - Hot flush [Unknown]
  - Paraesthesia [Unknown]
  - Neuropathy peripheral [Unknown]
  - Peripheral sensory neuropathy [Unknown]
  - Hyperhidrosis [Unknown]
  - Weight increased [Unknown]
  - Dyspnoea [Unknown]
  - Peripheral motor neuropathy [Unknown]
  - Arthralgia [Unknown]
  - Death [Fatal]
  - Flushing [Unknown]

NARRATIVE: CASE EVENT DATE: 20160331
